FAERS Safety Report 9518148 (Version 5)
Quarter: 2013Q4

REPORT INFORMATION
  Report Type: Spontaneous
  Country: DE (occurrence: DE)
  Receive Date: 20130912
  Receipt Date: 20131230
  Transmission Date: 20140711
  Serious: Yes (Hospitalization, Other)
  Sender: FDA-Public Use
  Company Number: DE-JNJFOC-20130413767

PATIENT
  Age: 81 Year
  Sex: Female

DRUGS (7)
  1. XARELTO [Suspect]
     Indication: ATRIAL FIBRILLATION
     Route: 048
     Dates: start: 20120328, end: 20120824
  2. XARELTO [Suspect]
     Indication: CEREBROVASCULAR ACCIDENT PROPHYLAXIS
     Route: 048
     Dates: start: 20120328, end: 20120824
  3. CARVEDILOL [Concomitant]
     Indication: ATRIAL FIBRILLATION
     Route: 065
     Dates: start: 20120328
  4. FOSAVANCE [Concomitant]
     Indication: OSTEOPOROSIS
     Route: 048
     Dates: start: 20110420
  5. RAMIPRIL [Concomitant]
     Indication: HYPERTENSION
     Route: 048
  6. VALSARTAN [Concomitant]
     Indication: HYPERTENSION
     Route: 048
     Dates: start: 20120116, end: 20120921
  7. TOREM [Concomitant]
     Route: 048
     Dates: start: 20080925, end: 20130813

REACTIONS (20)
  - Skin ulcer [Unknown]
  - Skin ulcer [Unknown]
  - Vasculitis [Recovering/Resolving]
  - Vasculitis [Unknown]
  - Renal failure acute [Unknown]
  - Skin ulcer [Unknown]
  - Blood blister [Recovering/Resolving]
  - Skin ulcer haemorrhage [Unknown]
  - Skin necrosis [Unknown]
  - Dyspnoea [Unknown]
  - Inflammation [Unknown]
  - Rash macular [Recovering/Resolving]
  - Pruritus [Unknown]
  - Asthenia [Unknown]
  - Pain in extremity [Unknown]
  - Petechiae [Recovered/Resolved]
  - Skin ulcer [Unknown]
  - Blister [Unknown]
  - Skin ulcer [Unknown]
  - Skin ulcer [Unknown]
